FAERS Safety Report 19242895 (Version 2)
Quarter: 2021Q3

REPORT INFORMATION
  Report Type: Spontaneous
  Country: US (occurrence: US)
  Receive Date: 20210510
  Receipt Date: 20210903
  Transmission Date: 20211014
  Serious: No
  Sender: FDA-Public Use
  Company Number: US-JNJFOC-20210454482

PATIENT

DRUGS (1)
  1. ZYRTEC [Suspect]
     Active Substance: CETIRIZINE HYDROCHLORIDE
     Indication: PRODUCT USED FOR UNKNOWN INDICATION
     Dosage: USED REGULARLY THEN STOPPED
     Route: 065

REACTIONS (1)
  - Withdrawal syndrome [Unknown]
